FAERS Safety Report 6221690-7 (Version None)
Quarter: 2009Q2

REPORT INFORMATION
  Report Type: 
  Country: None (occurrence: None)
  Receive Date: 20090608
  Receipt Date: 20090601
  Transmission Date: 20091009
  Serious: Yes (Death, Hospitalization, Disabling)
  Sender: FDA-Public Use
  Company Number: WAES 0801USA00427

PATIENT
  Age: 64 Year
  Sex: Male
  Weight: 119.7496 kg

DRUGS (18)
  1. CAP VORINOSTAT [Suspect]
     Indication: ACUTE MYELOID LEUKAEMIA
     Dosage: 400 MG/DAILY/PO
     Route: 048
     Dates: start: 20071218, end: 20071230
  2. INJ DECITABINE [Suspect]
     Indication: ACUTE MYELOID LEUKAEMIA
     Dosage: 48 MG/DAILY/IV
     Route: 042
     Dates: start: 20071218, end: 20071222
  3. EXJADE [Concomitant]
  4. HYDREA [Concomitant]
  5. IMODIUM [Concomitant]
  6. K-DUR [Concomitant]
  7. LASIX [Concomitant]
  8. LEVAQUIN [Concomitant]
  9. PREVACID [Concomitant]
  10. TYLENOL (CAPLET) [Concomitant]
  11. VALTREX [Concomitant]
  12. ALLOPURINOL [Concomitant]
  13. BETAXOLOL HYDROCHLORIDE [Concomitant]
  14. CIPROFLOXACIN [Concomitant]
  15. POTASSIUM CHLORIDE [Concomitant]
  16. VITAMINS (UNSPECIFIED) [Concomitant]
  17. DIFLUCAN [Concomitant]
  18. EUCERIN CREME [Concomitant]

REACTIONS (10)
  - ACUTE MYELOID LEUKAEMIA [None]
  - BLOOD CALCIUM DECREASED [None]
  - BLOOD PHOSPHORUS DECREASED [None]
  - HAEMATEMESIS [None]
  - HAEMOGLOBIN DECREASED [None]
  - HYPOKALAEMIA [None]
  - MALIGNANT NEOPLASM PROGRESSION [None]
  - NAUSEA [None]
  - PLATELET COUNT DECREASED [None]
  - PYREXIA [None]
